FAERS Safety Report 12190081 (Version 1)
Quarter: 2016Q1

REPORT INFORMATION
  Report Type: Spontaneous
  Country: IL (occurrence: IL)
  Receive Date: 20160318
  Receipt Date: 20160318
  Transmission Date: 20160526
  Serious: Yes (Other)
  Sender: FDA-Public Use
  Company Number: IL-ACCORD-038754

PATIENT
  Age: 63 Year
  Sex: Female

DRUGS (3)
  1. GEMCITABINE/GEMCITABINE HYDROCHLORIDE [Suspect]
     Active Substance: GEMCITABINE\GEMCITABINE HYDROCHLORIDE
     Indication: OVARIAN CANCER
  2. ELTROXIN [Concomitant]
     Active Substance: LEVOTHYROXINE
  3. OMEPRADEX [Concomitant]
     Active Substance: OMEPRAZOLE

REACTIONS (1)
  - Subacute cutaneous lupus erythematosus [Recovered/Resolved]
